FAERS Safety Report 17841412 (Version 1)
Quarter: 2020Q2

REPORT INFORMATION
  Report Type: Spontaneous
  Country: CN (occurrence: CN)
  Receive Date: 20200529
  Receipt Date: 20200529
  Transmission Date: 20200714
  Serious: Yes (Other)
  Sender: FDA-Public Use
  Company Number: CN-ASTRAZENECA-2020SE68967

PATIENT
  Age: 28494 Day
  Sex: Female

DRUGS (3)
  1. PULMICORT RESPULES [Suspect]
     Active Substance: BUDESONIDE
     Indication: BRONCHIAL DISORDER
     Route: 055
     Dates: start: 20200428, end: 20200429
  2. DAFENKECHUANG [Suspect]
     Active Substance: ALBUTEROL SULFATE
     Indication: BRONCHIAL DISORDER
     Route: 055
     Dates: start: 20200428, end: 20200429
  3. PULMICORT RESPULES [Suspect]
     Active Substance: BUDESONIDE
     Indication: PRODUCTIVE COUGH
     Route: 055
     Dates: start: 20200428, end: 20200429

REACTIONS (6)
  - Agitation [Recovered/Resolved]
  - Palpitations [Recovered/Resolved]
  - Blood pressure abnormal [Recovered/Resolved]
  - Chest discomfort [Recovered/Resolved]
  - Hypotension [Recovered/Resolved]
  - Angina pectoris [Recovered/Resolved]

NARRATIVE: CASE EVENT DATE: 20200429
